FAERS Safety Report 24575576 (Version 2)
Quarter: 2024Q4

REPORT INFORMATION
  Report Type: Spontaneous
  Country: US (occurrence: US)
  Receive Date: 20241104
  Receipt Date: 20241219
  Transmission Date: 20250114
  Serious: No
  Sender: PFIZER
  Company Number: US-PFIZER INC-202400285429

PATIENT
  Age: 14 Year
  Sex: Male
  Weight: 46.72 kg

DRUGS (1)
  1. GENOTROPIN [Suspect]
     Active Substance: SOMATROPIN
     Indication: Short stature
     Dosage: 2.2 MG, 1X/DAY

REACTIONS (2)
  - Device leakage [Unknown]
  - Device delivery system issue [Unknown]
